FAERS Safety Report 4913164-8 (Version None)
Quarter: 2006Q1

REPORT INFORMATION
  Report Type: 
  Country: None (occurrence: None)
  Receive Date: 20060215
  Receipt Date: 20051003
  Transmission Date: 20060701
  Serious: Yes (Hospitalization, Disabling)
  Sender: FDA-Public Use
  Company Number: PR-MERCK-0510USA02880

PATIENT
  Age: 63 Year
  Sex: Female
  Weight: 78 kg

DRUGS (1)
  1. VIOXX [Suspect]
     Indication: BACK PAIN
     Route: 048
     Dates: start: 19991109, end: 20000401

REACTIONS (12)
  - ANORECTAL DISORDER [None]
  - ARRHYTHMIA [None]
  - ASTHMA [None]
  - BALANCE DISORDER [None]
  - CARDIAC DISORDER [None]
  - CARDIAC VALVE DISEASE [None]
  - CONGESTIVE CARDIOMYOPATHY [None]
  - FATIGUE [None]
  - HEART RATE INCREASED [None]
  - HEART RATE IRREGULAR [None]
  - HEART VALVE CALCIFICATION [None]
  - HYPERTENSION [None]
